FAERS Safety Report 9586579 (Version 1)
Quarter: 2013Q4

REPORT INFORMATION
  Report Type: Spontaneous
  Country: US (occurrence: US)
  Receive Date: 20131003
  Receipt Date: 20131003
  Transmission Date: 20140711
  Serious: Yes (Other)
  Sender: FDA-Public Use
  Company Number: US-VERTEX PHARMACEUTICALS INC-2013-010040

PATIENT
  Age: 60 Year
  Sex: Female

DRUGS (10)
  1. INCIVEK [Suspect]
     Indication: HEPATITIS C
     Dosage: UNK
     Dates: start: 20130517
  2. PEGASYS [Suspect]
     Indication: HEPATITIS C
     Dosage: UNK
     Dates: start: 20130517, end: 201309
  3. RIBAVIRIN [Suspect]
     Indication: HEPATITIS C
     Dosage: UNK
     Dates: start: 20130517, end: 201309
  4. CALCIUM [Concomitant]
  5. LASIX [Concomitant]
  6. LEVOTHYROXINE [Concomitant]
  7. LOMOTIL [Concomitant]
  8. SPIRONOLACTONE [Concomitant]
  9. ZYRTEC [Concomitant]
  10. ZINC [Concomitant]

REACTIONS (3)
  - Hepatocellular carcinoma [Not Recovered/Not Resolved]
  - Ascites [Not Recovered/Not Resolved]
  - Hepatic lesion [Not Recovered/Not Resolved]
